FAERS Safety Report 10470509 (Version 3)
Quarter: 2014Q4

REPORT INFORMATION
  Report Type: Spontaneous
  Country: BR (occurrence: BR)
  Receive Date: 20140923
  Receipt Date: 20141110
  Transmission Date: 20150528
  Serious: Yes (Hospitalization)
  Sender: FDA-Public Use
  Company Number: BR-PFIZER INC-2014260105

PATIENT
  Age: 67 Year
  Sex: Female
  Weight: 57 kg

DRUGS (12)
  1. NEXIUM [Suspect]
     Active Substance: ESOMEPRAZOLE MAGNESIUM
     Indication: GASTRITIS
     Dosage: UNK
     Route: 048
     Dates: start: 2012
  2. AMITRIPTYLINE [Concomitant]
     Active Substance: AMITRIPTYLINE
     Indication: DEPRESSION
     Dosage: UNK
     Route: 048
  3. ARADOIS [Concomitant]
     Active Substance: LOSARTAN POTASSIUM
     Indication: BLOOD GLUCOSE INCREASED
     Dosage: 0.5 DF, DAILY
     Route: 048
     Dates: start: 201406
  4. RALOXIFENE [Concomitant]
     Active Substance: RALOXIFENE
     Indication: OSTEOPOROSIS
     Dosage: UNK
     Route: 065
  5. ATENOLOL. [Suspect]
     Active Substance: ATENOLOL
     Dosage: 25 MG, 2X/DAY
     Route: 048
  6. PREDNISONE. [Concomitant]
     Active Substance: PREDNISONE
     Indication: RHEUMATOID ARTHRITIS
     Dosage: UNK
     Route: 065
  7. METHOTREXATE SODIUM. [Suspect]
     Active Substance: METHOTREXATE SODIUM
     Indication: RHEUMATOID ARTHRITIS
     Dosage: UNK
     Route: 065
  8. SIMVASTATIN. [Concomitant]
     Active Substance: SIMVASTATIN
     Dosage: 20 MG, QD
     Route: 048
     Dates: start: 2006
  9. ATENOLOL. [Suspect]
     Active Substance: ATENOLOL
     Indication: HYPERTENSION
     Dosage: 25 MG, DAILY
     Route: 048
     Dates: start: 2004
  10. CIMZIA [Suspect]
     Active Substance: CERTOLIZUMAB PEGOL
     Indication: RHEUMATOID ARTHRITIS
     Dosage: 200 MG, MONTHLY
     Route: 058
     Dates: start: 201408
  11. GLIFAGE [Suspect]
     Active Substance: METFORMIN HYDROCHLORIDE
     Indication: BLOOD GLUCOSE INCREASED
     Dosage: 0.5 DF, 2X/DAY
     Route: 065
     Dates: start: 201406
  12. SOMALGIN [Concomitant]
     Active Substance: ASPIRIN\DIHYDROXYALUMINUM AMINOACETATE ANHYDROUS\MAGNESIUM CARBONATE
     Indication: ANTICOAGULANT THERAPY
     Dosage: UNK
     Route: 048
     Dates: start: 2012

REACTIONS (9)
  - Gastritis [Unknown]
  - Aortic aneurysm [Recovered/Resolved]
  - Cataract [Recovered/Resolved]
  - Cholelithiasis [Recovered/Resolved]
  - Weight decreased [Recovered/Resolved]
  - Mobility decreased [Unknown]
  - Arthralgia [Recovered/Resolved]
  - Blood glucose increased [Recovered/Resolved]
  - Influenza [Recovered/Resolved]

NARRATIVE: CASE EVENT DATE: 2006
